FAERS Safety Report 11348418 (Version 3)
Quarter: 2017Q1

REPORT INFORMATION
  Report Type: Report from Study
  Country: None (occurrence: US)
  Receive Date: 20150806
  Receipt Date: 20170227
  Transmission Date: 20170428
  Serious: Yes (Death, Hospitalization)
  Sender: FDA-Public Use
  Company Number: US-ABBVIE-15P-163-1439066-00

PATIENT
  Age: 79 Year
  Sex: Male

DRUGS (1)
  1. DUOPA [Suspect]
     Active Substance: CARBIDOPA\LEVODOPA
     Indication: PRODUCT USED FOR UNKNOWN INDICATION
     Route: 050
     Dates: start: 2009, end: 201508

REACTIONS (3)
  - Thrombosis [Fatal]
  - Apnoea [Fatal]
  - Resuscitation [Fatal]

NARRATIVE: CASE EVENT DATE: 20150622
